FAERS Safety Report 4771695-8 (Version None)
Quarter: 2005Q3

REPORT INFORMATION
  Report Type: 
  Country: None (occurrence: None)
  Receive Date: 20050914
  Receipt Date: 20050830
  Transmission Date: 20060218
  Serious: Yes (Hospitalization)
  Sender: FDA-Public Use
  Company Number: B0390098A

PATIENT
  Age: 40 Year
  Sex: Male

DRUGS (6)
  1. ZIDOVUDINE [Suspect]
     Indication: HIV INFECTION
  2. LAMIVUDINE [Suspect]
     Indication: HIV INFECTION
  3. NEVIRAPINE [Concomitant]
  4. INDINAVIR SULFATE [Concomitant]
  5. CO-TRIMOXAZOLE [Concomitant]
  6. FLUCONAZOLE [Concomitant]

REACTIONS (8)
  - DYSLIPIDAEMIA [None]
  - HYPERLACTACIDAEMIA [None]
  - HYPOCHOLESTEROLAEMIA [None]
  - NAUSEA [None]
  - TACHYCARDIA [None]
  - TACHYPNOEA [None]
  - VOMITING [None]
  - WEIGHT DECREASED [None]
